FAERS Safety Report 7413578-0 (Version None)
Quarter: 2011Q2

REPORT INFORMATION
  Report Type: 
  Country: None (occurrence: None)
  Receive Date: 20110413
  Receipt Date: 20110315
  Transmission Date: 20111010
  Serious: No
  Sender: FDA-Public Use
  Company Number: US-BAYER-2011-025325

PATIENT
  Age: 55 Year
  Sex: Male
  Weight: 91 kg

DRUGS (1)
  1. ALEVE [Suspect]
     Indication: ANALGESIC THERAPY
     Dosage: 440 MG, BID
     Route: 048
     Dates: start: 20110308

REACTIONS (1)
  - NO ADVERSE EVENT [None]
